FAERS Safety Report 12404726 (Version 1)
Quarter: 2016Q2

REPORT INFORMATION
  Report Type: Spontaneous
  Country: SE (occurrence: SE)
  Receive Date: 20160525
  Receipt Date: 20160525
  Transmission Date: 20160815
  Serious: Yes (Hospitalization, Other)
  Sender: FDA-Public Use
  Company Number: SE-PFIZER INC-2016263620

PATIENT
  Sex: Female

DRUGS (1)
  1. CYTOTEC [Suspect]
     Active Substance: MISOPROSTOL
     Indication: LABOUR STIMULATION
     Dosage: EVERY TWO HOURS

REACTIONS (9)
  - Precipitate labour [Unknown]
  - Genital pain [Not Recovered/Not Resolved]
  - Vaginal laceration [Unknown]
  - Pelvic haematoma obstetric [Unknown]
  - Haemorrhage [Unknown]
  - Uterine cervical laceration [Unknown]
  - Prescribed overdose [Unknown]
  - Product use issue [Unknown]
  - Complication of delivery [Unknown]
